FAERS Safety Report 4768670-6 (Version None)
Quarter: 2005Q3

REPORT INFORMATION
  Report Type: 
  Country: None (occurrence: None)
  Receive Date: 20050914
  Receipt Date: 20050906
  Transmission Date: 20060218
  Serious: Yes (Life-Threatening, Hospitalization, Other)
  Sender: FDA-Public Use
  Company Number: US-JNJFOC-20041205683

PATIENT
  Sex: Male
  Weight: 55 kg

DRUGS (14)
  1. CISAPRIDE [Suspect]
     Route: 048
  2. CISAPRIDE [Suspect]
     Route: 048
  3. CISAPRIDE [Suspect]
     Route: 048
  4. CISAPRIDE [Suspect]
     Route: 048
  5. CARNITINE [Concomitant]
  6. FLONASE [Concomitant]
  7. MULTI-VITAMINS [Concomitant]
  8. MULTI-VITAMINS [Concomitant]
  9. MULTI-VITAMINS [Concomitant]
  10. MULTI-VITAMINS [Concomitant]
  11. MULTI-VITAMINS [Concomitant]
  12. MULTI-VITAMINS [Concomitant]
  13. MULTI-VITAMINS [Concomitant]
  14. MULTI-VITAMINS [Concomitant]

REACTIONS (6)
  - CARDIAC FAILURE [None]
  - ELECTROCARDIOGRAM QT CORRECTED INTERVAL PROLONGED [None]
  - ELECTROMECHANICAL DISSOCIATION [None]
  - HYPOKALAEMIA [None]
  - PNEUMONIA [None]
  - SEPSIS [None]
